FAERS Safety Report 9226783 (Version 1)
Quarter: 2013Q1

REPORT INFORMATION
  Report Type: Spontaneous
  Country: US (occurrence: None)
  Receive Date: 20120926
  Receipt Date: 20120926
  Transmission Date: 20140127
  Serious: Yes (Other)
  Sender: FDA-Public Use
  Company Number: AUR-APL-2011-06019

PATIENT
  Sex: Male
  Weight: 59.88 kg

DRUGS (5)
  1. ALENDRONIC ACID [Suspect]
     Indication: OSTEOPOROSIS
     Dosage: 70 MG, 1 WK, ORAL
     Route: 048
     Dates: start: 20110917, end: 20111102
  2. LISINOPRIL ( LISINOPRIL) [Concomitant]
  3. METFORMIN ( METFORMIN) [Concomitant]
  4. SIMVASTATIN ( SIMVASTATIN) [Concomitant]
  5. LOW DOSE ASPIRIN ( ACETYLSALICYLIC ACID) [Concomitant]

REACTIONS (3)
  - Vertigo [None]
  - Medication error [None]
  - Self-medication [None]
